FAERS Safety Report 9530696 (Version 2)
Quarter: 2013Q3

REPORT INFORMATION
  Report Type: Spontaneous
  Country: DE (occurrence: DE)
  Receive Date: 20130918
  Receipt Date: 20130927
  Transmission Date: 20140515
  Serious: Yes (Other)
  Sender: FDA-Public Use
  Company Number: DE-RANBAXY-2013RR-73093

PATIENT
  Sex: Male

DRUGS (5)
  1. PARACETAMOL [Suspect]
     Indication: HEADACHE
     Dosage: UNK
     Route: 063
  2. PARACETAMOL [Suspect]
     Indication: HEADACHE
     Dosage: UNK
     Route: 063
  3. THEOPHYLLIN [Suspect]
     Indication: HEADACHE
     Dosage: 125 MG, QD
     Route: 063
  4. IBUPROFEN [Suspect]
     Indication: HEADACHE
     Dosage: 600 MG, QID
     Route: 063
  5. CIPROFLOXACIN [Suspect]
     Indication: WOUND
     Dosage: UNK
     Route: 063

REACTIONS (1)
  - Hepatobiliary disease [Unknown]
